FAERS Safety Report 19623036 (Version 2)
Quarter: 2021Q4

REPORT INFORMATION
  Report Type: Spontaneous
  Country: US (occurrence: US)
  Receive Date: 20210728
  Receipt Date: 20211012
  Transmission Date: 20220303
  Serious: Yes (Death, Life-Threatening, Hospitalization)
  Sender: FDA-Public Use
  Company Number: US-DRREDDYS-SPO/USA/21/0138278

PATIENT
  Age: 65 Year
  Sex: Male

DRUGS (3)
  1. HEPARIN SODIUM [Suspect]
     Active Substance: HEPARIN SODIUM
     Indication: Cardiopulmonary bypass
     Dosage: 52,000 U OF UFH
  2. HEPARIN SODIUM [Suspect]
     Active Substance: HEPARIN SODIUM
     Indication: Coronary artery disease
     Dosage: 11,750 U OF UNFRACTIONATED HEPARIN
  3. HEPARIN SODIUM [Suspect]
     Active Substance: HEPARIN SODIUM
     Dosage: HEPARIN INFUSION OF 500 U/H WAS STARTED ON POSTOPERATIVE DAY (POD) 1 AND DISCONTINUED ON POD 13

REACTIONS (7)
  - Renal tubular necrosis [Fatal]
  - Renal failure [Fatal]
  - Hypotension [Unknown]
  - Peripheral artery occlusion [Recovering/Resolving]
  - Mitral valve stenosis [Recovering/Resolving]
  - Atrial fibrillation [Recovered/Resolved]
  - Heparin-induced thrombocytopenia [Recovered/Resolved]
